FAERS Safety Report 25715736 (Version 2)
Quarter: 2025Q4

REPORT INFORMATION
  Report Type: Spontaneous
  Country: US (occurrence: US)
  Receive Date: 20250822
  Receipt Date: 20251121
  Transmission Date: 20260118
  Serious: Yes (Other)
  Sender: NANTKWEST
  Company Number: US-NantWorks-2025-US-NANT-00025

PATIENT
  Age: 69 Year
  Sex: Female

DRUGS (4)
  1. ANKTIVA [Suspect]
     Active Substance: NOGAPENDEKIN ALFA INBAKICEPT-PMLN
     Indication: Bladder transitional cell carcinoma
     Dosage: THERAPY START DATE
     Route: 043
     Dates: start: 20250311
  2. ANKTIVA [Suspect]
     Active Substance: NOGAPENDEKIN ALFA INBAKICEPT-PMLN
     Dosage: DATE OF LAST DOSE PRIOR TO ONSET OF THE INITIAL EVENTS REPORTED BY THE PATIENT (DOSE NOT PROVIDED)
     Route: 043
     Dates: start: 20250425
  3. BCG [Concomitant]
     Indication: Bladder transitional cell carcinoma
     Dosage: THERAPY START DATE
     Route: 043
     Dates: start: 20250311
  4. BCG [Concomitant]
     Dosage: DATE OF LAST DOSE PRIOR TO ONSET OF THE INITIAL EVENTS REPORTED BY THE PATIENT (DOSE NOT PROVIDED)
     Route: 043
     Dates: start: 20250425

REACTIONS (7)
  - Pelvic pain [Not Recovered/Not Resolved]
  - Perineal pain [Not Recovered/Not Resolved]
  - Pain [Not Recovered/Not Resolved]
  - Pollakiuria [Not Recovered/Not Resolved]
  - Dysuria [Not Recovered/Not Resolved]
  - Abdominal pain lower [Not Recovered/Not Resolved]
  - Insomnia [Not Recovered/Not Resolved]

NARRATIVE: CASE EVENT DATE: 20250501
